FAERS Safety Report 7509171-1 (Version None)
Quarter: 2011Q2

REPORT INFORMATION
  Report Type: 
  Country: None (occurrence: None)
  Receive Date: 20110527
  Receipt Date: 20100907
  Transmission Date: 20111010
  Serious: No
  Sender: FDA-Public Use
  Company Number: US-MYLANLABS-2010S1015055

PATIENT
  Age: 10 Year
  Sex: Male

DRUGS (3)
  1. AMITRIPTYLINE HCL [Suspect]
     Route: 048
     Dates: start: 20100501, end: 20100501
  2. AMITRIPTYLINE HCL [Suspect]
     Indication: ABDOMINAL PAIN
     Route: 048
     Dates: start: 20100806
  3. BENADRYL [Concomitant]
     Indication: INSOMNIA

REACTIONS (3)
  - ABDOMINAL PAIN [None]
  - DRUG INEFFECTIVE FOR UNAPPROVED INDICATION [None]
  - ANXIETY [None]
